FAERS Safety Report 5522557-X (Version None)
Quarter: 2007Q4

REPORT INFORMATION
  Report Type: 
  Country: None (occurrence: None)
  Receive Date: 20071120
  Receipt Date: 20071109
  Transmission Date: 20080405
  Serious: Yes (Other)
  Sender: FDA-Public Use
  Company Number: US-SANOFI-SYNTHELABO-A03200706469

PATIENT
  Age: 72 Year
  Sex: Male

DRUGS (6)
  1. AMOXICILLIN [Concomitant]
     Indication: DENTAL IMPLANTATION
     Dosage: UNK
     Route: 065
  2. ASPIRIN [Concomitant]
     Dosage: UNK
     Route: 065
  3. ATENOLOL [Concomitant]
     Dosage: UNK
     Route: 065
  4. ZOCOR [Concomitant]
     Dosage: UNK
     Route: 065
  5. COUMADIN [Concomitant]
     Dosage: UNK
     Route: 065
  6. AMBIEN CR [Suspect]
     Indication: INSOMNIA
     Route: 048
     Dates: start: 20070101

REACTIONS (3)
  - DRY MOUTH [None]
  - DYSPHONIA [None]
  - LARYNGEAL OEDEMA [None]
